FAERS Safety Report 5717693-9 (Version None)
Quarter: 2008Q2

REPORT INFORMATION
  Report Type: 
  Country: None (occurrence: None)
  Receive Date: 20080425
  Receipt Date: 20080411
  Transmission Date: 20081010
  Serious: Yes (Hospitalization)
  Sender: FDA-Public Use
  Company Number: FR-AMGEN-US259850

PATIENT
  Age: 42 Year
  Sex: Male

DRUGS (3)
  1. ENBREL [Suspect]
     Indication: PSORIATIC ARTHROPATHY
     Route: 058
     Dates: start: 20070701, end: 20071019
  2. ENBREL [Suspect]
     Route: 058
     Dates: start: 20080128, end: 20080225
  3. IBUPROFEN [Concomitant]
     Dosage: 2 TABLETS (200 MG), ONE SINGLE INTAKE
     Route: 048
     Dates: start: 20071001, end: 20071001

REACTIONS (6)
  - ANTINUCLEAR ANTIBODY INCREASED [None]
  - AUTOIMMUNE HEPATITIS [None]
  - COAGULATION FACTOR V LEVEL DECREASED [None]
  - HEPATITIS ACUTE [None]
  - HYPERGAMMAGLOBULINAEMIA [None]
  - PROTHROMBIN TIME PROLONGED [None]
